FAERS Safety Report 16973413 (Version 1)
Quarter: 2019Q4

REPORT INFORMATION
  Report Type: Spontaneous
  Country: US (occurrence: US)
  Receive Date: 20191030
  Receipt Date: 20191030
  Transmission Date: 20200122
  Serious: No
  Sender: FDA-Public Use
  Company Number: US-ASTRAZENECA-2019SF40747

PATIENT
  Age: 2539 Day
  Sex: Male

DRUGS (4)
  1. ZYRTEC OTC [Concomitant]
     Indication: MULTIPLE ALLERGIES
  2. ALBUTEROL NEBULIZER [Concomitant]
     Active Substance: ALBUTEROL
     Indication: ASTHMA
     Dosage: AS REQUIRED
  3. ALBUTEROL  RESCUE INHALER [Concomitant]
     Indication: ASTHMA
     Dosage: AS REQUIRED
  4. SYMBICORT [Suspect]
     Active Substance: BUDESONIDE\FORMOTEROL FUMARATE DIHYDRATE
     Indication: ASTHMA
     Dosage: 80MCG/4.5MCG 2 PUFFS BID
     Route: 055

REACTIONS (8)
  - Diarrhoea [Not Recovered/Not Resolved]
  - Off label use [Unknown]
  - Rhinorrhoea [Not Recovered/Not Resolved]
  - Abdominal pain upper [Not Recovered/Not Resolved]
  - Dyspnoea [Unknown]
  - Cough [Not Recovered/Not Resolved]
  - Product use in unapproved indication [Unknown]
  - Product dose omission [Unknown]

NARRATIVE: CASE EVENT DATE: 20190925
